FAERS Safety Report 9191246 (Version 1)
Quarter: 2013Q1

REPORT INFORMATION
  Report Type: Spontaneous
  Country: GB (occurrence: GB)
  Receive Date: 20130326
  Receipt Date: 20130326
  Transmission Date: 20140127
  Serious: Yes (Other)
  Sender: FDA-Public Use
  Company Number: GB-009507513-1303GBR008951

PATIENT
  Age: 4 Decade
  Sex: Male

DRUGS (7)
  1. ISENTRESS [Suspect]
     Indication: HEPATITIS C
     Dosage: UNK
     Route: 065
     Dates: start: 201204
  2. ATAZANAVIR [Suspect]
     Indication: HEPATITIS C
     Dosage: UNK
     Route: 065
     Dates: start: 201204
  3. RITONAVIR [Suspect]
     Indication: HEPATITIS C
     Dosage: UNK
     Route: 065
     Dates: start: 201204
  4. TELAPREVIR [Suspect]
     Indication: HEPATITIS C
     Dosage: 20 G, Q8H
     Route: 048
     Dates: start: 201204
  5. TRUVADA [Suspect]
     Indication: HEPATITIS C
     Dosage: UNK
     Route: 065
     Dates: start: 201204
  6. INTERFERON ALFA [Concomitant]
     Indication: HEPATITIS C
     Dosage: 180 MICROGRAM, QW
     Route: 065
     Dates: start: 2008
  7. RIBAVIRIN [Concomitant]
     Indication: HEPATITIS C
     Dosage: 600 MG, BID
     Route: 065
     Dates: start: 2008

REACTIONS (5)
  - Erectile dysfunction [Unknown]
  - Haemophilic arthropathy [Unknown]
  - Depressed mood [Unknown]
  - Fatigue [Unknown]
  - Off label use [Unknown]
